FAERS Safety Report 19373632 (Version 1)
Quarter: 2021Q2

REPORT INFORMATION
  Report Type: Spontaneous
  Country: GB (occurrence: GB)
  Receive Date: 20210603
  Receipt Date: 20210603
  Transmission Date: 20210717
  Serious: Yes (Other)
  Sender: FDA-Public Use
  Company Number: GB-ASCEND THERAPEUTICS US, LLC-2112323

PATIENT
  Age: 56 Year
  Sex: Female

DRUGS (5)
  1. ESTROGEL [Suspect]
     Active Substance: ESTRADIOL
     Indication: OSTEOPOROSIS PROPHYLAXIS
     Route: 065
  2. ESTROGEL [Suspect]
     Active Substance: ESTRADIOL
  3. EVOREL CONTI (ESTRADIOL, NORETHISTERONE ACETATE)) [Suspect]
     Active Substance: ESTRADIOL\NORETHINDRONE ACETATE
     Route: 065
  4. FEMSEVEN (ESTRADIOL) [Suspect]
     Active Substance: ESTRADIOL
     Route: 065
  5. ESTRADIOL, NOS (ESTRADIOL) [Suspect]
     Active Substance: ESTRADIOL
     Route: 065

REACTIONS (7)
  - Skin disorder [Unknown]
  - Somnolence [Unknown]
  - Off label use [Unknown]
  - Drug ineffective [Unknown]
  - Fatigue [Unknown]
  - Headache [Unknown]
  - Mood swings [Unknown]
